FAERS Safety Report 5424335-9 (Version None)
Quarter: 2007Q3

REPORT INFORMATION
  Report Type: 
  Country: None (occurrence: None)
  Receive Date: 20070823
  Receipt Date: 20070809
  Transmission Date: 20080115
  Serious: Yes (Hospitalization)
  Sender: FDA-Public Use
  Company Number: JP-GENENTECH-246093

PATIENT
  Sex: Female
  Weight: 45.986 kg

DRUGS (4)
  1. BEVACIZUMAB [Suspect]
     Indication: COLON CANCER
     Dosage: 5 MG/KG, QD
     Route: 041
     Dates: start: 20070801
  2. OXALIPLATIN [Concomitant]
     Indication: COLON CANCER
     Dosage: UNK, UNKNOWN
     Route: 041
     Dates: start: 20070801
  3. FLUOROURACIL [Concomitant]
     Indication: COLON CANCER
     Dosage: UNK, UNKNOWN
     Route: 041
     Dates: start: 20070801
  4. ISOVORIN [Concomitant]
     Indication: COLON CANCER
     Dosage: UNK, UNKNOWN
     Route: 041

REACTIONS (1)
  - PYREXIA [None]
